FAERS Safety Report 17185087 (Version 1)
Quarter: 2019Q4

REPORT INFORMATION
  Report Type: Spontaneous
  Country: US (occurrence: US)
  Receive Date: 20191128
  Receipt Date: 20191128
  Transmission Date: 20200122
  Serious: Yes (Death, Hospitalization)
  Sender: FDA-Public Use
  Company Number: None

PATIENT
  Sex: Female
  Weight: 66.8 kg

DRUGS (5)
  1. ONCASPAR [Concomitant]
     Active Substance: PEGASPARGASE
  2. CYCLOPHOSPHAMIDE. [Suspect]
     Active Substance: CYCLOPHOSPHAMIDE
  3. CYTARABINE. [Concomitant]
     Active Substance: CYTARABINE
  4. METHOTREXATE. [Concomitant]
     Active Substance: METHOTREXATE
  5. MERCAPTOPURINE. [Concomitant]
     Active Substance: MERCAPTOPURINE

REACTIONS (13)
  - Bronchopulmonary aspergillosis [None]
  - Sepsis [None]
  - Pyrexia [None]
  - Hypotension [None]
  - Tachycardia [None]
  - Infusion related reaction [None]
  - Chills [None]
  - Acute pulmonary oedema [None]
  - Endocarditis [None]
  - Aortic valve incompetence [None]
  - Platelet count decreased [None]
  - Respiratory distress [None]
  - Respiratory failure [None]
